FAERS Safety Report 7267300-1 (Version None)
Quarter: 2011Q1

REPORT INFORMATION
  Report Type: 
  Country: None (occurrence: None)
  Receive Date: 20110201
  Receipt Date: 20110126
  Transmission Date: 20110831
  Serious: Yes (Hospitalization)
  Sender: FDA-Public Use
  Company Number: FR-PFIZER INC-2010179830

PATIENT
  Sex: Male

DRUGS (21)
  1. BRISTOPEN [Concomitant]
  2. ATARAX [Concomitant]
  3. FARMORUBICIN [Suspect]
     Dosage: UNK
     Route: 042
     Dates: start: 20100905
  4. OXYCODONE HCL [Concomitant]
  5. MOPRAL [Concomitant]
  6. ACUPAN [Concomitant]
  7. LYRICA [Suspect]
     Dosage: 75 MG, 2X/DAY
     Route: 048
     Dates: start: 20101023
  8. AMLOR [Concomitant]
  9. STILNOX [Concomitant]
  10. FORLAX [Concomitant]
  11. LOVENOX [Concomitant]
  12. PROFENID [Concomitant]
  13. LASIX [Concomitant]
  14. CALCIPARINE [Concomitant]
  15. ACETAMINOPHEN [Concomitant]
  16. SOLUPRED [Suspect]
     Dosage: 60 MG, 1X/DAY
     Route: 048
     Dates: start: 20101023
  17. TAXOL [Suspect]
     Dosage: UNK
     Route: 042
     Dates: start: 20100905
  18. SOLUDACTONE [Concomitant]
  19. HUMALOG [Concomitant]
  20. CIFLOX [Concomitant]
  21. FENTANYL [Concomitant]

REACTIONS (1)
  - BACTERIAL SEPSIS [None]
